FAERS Safety Report 25855245 (Version 1)
Quarter: 2025Q3

REPORT INFORMATION
  Report Type: Spontaneous
  Country: CA (occurrence: CA)
  Receive Date: 20250927
  Receipt Date: 20250927
  Transmission Date: 20251020
  Serious: Yes (Hospitalization, Other)
  Sender: IPSEN BIOPHARMACEUTICALS, INC.
  Company Number: CA-IPSEN Group, Research and Development-2025-23602

PATIENT
  Age: 40 Year
  Sex: Female
  Weight: 60 kg

DRUGS (2)
  1. LANREOTIDE [Suspect]
     Active Substance: LANREOTIDE
     Indication: Cervix carcinoma stage IV
     Dosage: PER MONTH
  2. LEVOTHYROXINE [Concomitant]
     Active Substance: LEVOTHYROXINE
     Indication: Thyroid disorder

REACTIONS (8)
  - Capillary leak syndrome [Unknown]
  - Cytokine release syndrome [Unknown]
  - Generalised oedema [Not Recovered/Not Resolved]
  - Ejection fraction decreased [Unknown]
  - Multiple organ dysfunction syndrome [Unknown]
  - Squamous cell carcinoma [Unknown]
  - Hypotension [Unknown]
  - Off label use [Unknown]
